FAERS Safety Report 8812734 (Version 1)
Quarter: 2012Q4

REPORT INFORMATION
  Report Type: 
  Country: US (occurrence: US)
  Receive Date: 20120927
  Receipt Date: 20120927
  Transmission Date: 20130627
  Serious: Yes (Other)
  Sender: FDA-Public Use
  Company Number: US-ROCHE-1127101

PATIENT
  Sex: Male

DRUGS (2)
  1. AVASTIN [Suspect]
     Indication: RENAL CANCER
     Route: 065
  2. SUTENT [Concomitant]

REACTIONS (3)
  - Pelvic neoplasm [Unknown]
  - Metastases to bone [Unknown]
  - Disease progression [Unknown]
